FAERS Safety Report 25998832 (Version 2)
Quarter: 2025Q4

REPORT INFORMATION
  Report Type: Report from Study
  Country: CA (occurrence: CA)
  Receive Date: 20251105
  Receipt Date: 20251223
  Transmission Date: 20260118
  Serious: Yes (Other)
  Sender: APOTEX
  Company Number: CA-PGRTD-E2B_08100047

PATIENT
  Age: 29 Year
  Sex: Female

DRUGS (3)
  1. DOXYCYCLINE [Suspect]
     Active Substance: DOXYCYCLINE
     Indication: Localised infection
     Dosage: UNK
     Route: 061
  2. STELARA [Suspect]
     Active Substance: USTEKINUMAB
     Indication: Crohn^s disease
     Dosage: 1 EVERY 4 WEEKS
  3. STELARA [Suspect]
     Active Substance: USTEKINUMAB
     Indication: Colitis ulcerative

REACTIONS (9)
  - Pneumonia [Recovered/Resolved]
  - Skin infection [Not Recovered/Not Resolved]
  - Localised infection [Not Recovered/Not Resolved]
  - Arthropod bite [Recovered/Resolved]
  - Hypersensitivity [Recovered/Resolved]
  - Pyrexia [Recovered/Resolved]
  - Cellulitis [Recovered/Resolved]
  - Colitis ulcerative [Recovered/Resolved]
  - Rash [Recovered/Resolved]
